FAERS Safety Report 16535323 (Version 2)
Quarter: 2019Q4

REPORT INFORMATION
  Report Type: Spontaneous
  Country: US (occurrence: US)
  Receive Date: 20190705
  Receipt Date: 20191002
  Transmission Date: 20200122
  Serious: No
  Sender: FDA-Public Use
  Company Number: US-GW PHARMA-201906USGW1775

PATIENT

DRUGS (4)
  1. VITAMIN D3 [Concomitant]
     Active Substance: CHOLECALCIFEROL
     Indication: PRODUCT USED FOR UNKNOWN INDICATION
     Dosage: UNK
     Route: 065
  2. ONFI [Concomitant]
     Active Substance: CLOBAZAM
     Indication: SOMNOLENCE
     Dosage: UNK
     Route: 065
  3. EPIDIOLEX [Suspect]
     Active Substance: CANNABIDIOL
     Indication: EPILEPSY
     Dosage: 200 MG, BID
     Route: 048
     Dates: start: 20190325, end: 201903
  4. EPIDIOLEX [Suspect]
     Active Substance: CANNABIDIOL
     Dosage: 100 MG/ML, BID
     Route: 048
     Dates: start: 20190327

REACTIONS (1)
  - Somnolence [Not Recovered/Not Resolved]

NARRATIVE: CASE EVENT DATE: 2019
